FAERS Safety Report 18396385 (Version 1)
Quarter: 2020Q4

REPORT INFORMATION
  Report Type: Other
  Country: US (occurrence: US)
  Receive Date: 20201019
  Receipt Date: 20201019
  Transmission Date: 20210114
  Serious: Yes (Other)
  Sender: FDA-Public Use
  Company Number: US-ROCHE-2696774

PATIENT
  Sex: Female
  Weight: 86.26 kg

DRUGS (2)
  1. OCREVUS [Suspect]
     Active Substance: OCRELIZUMAB
     Route: 042
  2. OCREVUS [Suspect]
     Active Substance: OCRELIZUMAB
     Indication: RELAPSING-REMITTING MULTIPLE SCLEROSIS
     Dosage: STARTED 2 YEARS AGO?FIRST INFUSION SPLIT INTO 2 HALF INFUSIONS 2 WEEKS APART
     Route: 042

REACTIONS (2)
  - Herpes zoster [Recovering/Resolving]
  - Asthenia [Not Recovered/Not Resolved]
